FAERS Safety Report 18377417 (Version 1)
Quarter: 2020Q4

REPORT INFORMATION
  Report Type: Spontaneous
  Country: US (occurrence: US)
  Receive Date: 20201013
  Receipt Date: 20201013
  Transmission Date: 20210114
  Serious: Yes (Other)
  Sender: FDA-Public Use
  Company Number: None

PATIENT
  Age: 46 Year
  Sex: Male
  Weight: 67.2 kg

DRUGS (4)
  1. REMDESIVIR. [Suspect]
     Active Substance: REMDESIVIR
     Indication: COVID-19
     Dates: start: 20200530, end: 20200603
  2. LOVENOX 40 MG SQ DAILY [Concomitant]
     Dates: start: 20200530, end: 20200604
  3. TOCILIZUMAB 400 MG [Concomitant]
     Dates: start: 20200530, end: 20200530
  4. ACETAMINOPHEN 650 MG [Concomitant]
     Active Substance: ACETAMINOPHEN
     Dates: start: 20200601, end: 20200601

REACTIONS (3)
  - Aspartate aminotransferase increased [None]
  - Alanine aminotransferase increased [None]
  - Liver function test increased [None]

NARRATIVE: CASE EVENT DATE: 20200530
